FAERS Safety Report 8239553-4 (Version None)
Quarter: 2012Q1

REPORT INFORMATION
  Report Type: 
  Country: None (occurrence: None)
  Receive Date: 20120328
  Receipt Date: 20120316
  Transmission Date: 20120608
  Serious: No
  Sender: FDA-Public Use
  Company Number: FR-JNJFOC-20120310141

PATIENT

DRUGS (1)
  1. DURAGESIC-100 [Suspect]
     Indication: PRODUCT USED FOR UNKNOWN INDICATION
     Dosage: 1 PATCH OF 12.5 UG/HR + 0.5 PATCH OF 12.5 UG/HR
     Route: 062

REACTIONS (2)
  - OFF LABEL USE [None]
  - DRUG PRESCRIBING ERROR [None]
